FAERS Safety Report 6531674-7 (Version None)
Quarter: 2010Q1

REPORT INFORMATION
  Report Type: 
  Country: None (occurrence: None)
  Receive Date: 20100108
  Receipt Date: 20091229
  Transmission Date: 20100710
  Serious: Yes (Hospitalization)
  Sender: FDA-Public Use
  Company Number: DE-BRISTOL-MYERS SQUIBB COMPANY-14919807

PATIENT
  Age: 55 Year
  Sex: Male
  Weight: 78 kg

DRUGS (3)
  1. CETUXIMAB [Suspect]
     Indication: NON-SMALL CELL LUNG CANCER
     Dosage: RECENT INF ON 21DEC09;CETUXIMAB 5MG/ML;
     Route: 042
     Dates: start: 20091130
  2. CISPLATIN [Suspect]
     Indication: NON-SMALL CELL LUNG CANCER
     Dosage: DAY 1 OF 21 DAY CYCLE;RECENT INF ON 21DEC09
     Route: 042
     Dates: start: 20091130
  3. VINORELBINE [Suspect]
     Indication: NON-SMALL CELL LUNG CANCER
     Dosage: DAY 1,8 OF 21 DAY CYCLE;RECENT INF ON 21DEC09
     Route: 042
     Dates: start: 20091130

REACTIONS (1)
  - REFLUX OESOPHAGITIS [None]
